FAERS Safety Report 9726495 (Version 2)
Quarter: 2014Q1

REPORT INFORMATION
  Report Type: Spontaneous
  Country: US (occurrence: US)
  Receive Date: 20131203
  Receipt Date: 20140128
  Transmission Date: 20141002
  Serious: Yes (Other)
  Sender: FDA-Public Use
  Company Number: US-BAYER-2013-146793

PATIENT
  Age: 23 Year
  Sex: Female
  Weight: 67.57 kg

DRUGS (1)
  1. MIRENA [Suspect]
     Indication: CONTRACEPTION
     Dosage: 20 MCG/24HR, CONT
     Route: 015
     Dates: start: 20121202, end: 20131205

REACTIONS (9)
  - Device breakage [Recovered/Resolved]
  - Genital haemorrhage [None]
  - Device difficult to use [Recovered/Resolved]
  - Uterine perforation [Recovered/Resolved]
  - Pelvic pain [Recovered/Resolved]
  - Feeling abnormal [None]
  - Post procedural discomfort [None]
  - Complication of device removal [Recovered/Resolved]
  - Ovarian adhesion [Recovered/Resolved]
